FAERS Safety Report 23408763 (Version 1)
Quarter: 2024Q1

REPORT INFORMATION
  Report Type: Spontaneous
  Country: AU (occurrence: AU)
  Receive Date: 20240117
  Receipt Date: 20240117
  Transmission Date: 20240409
  Serious: Yes (Other)
  Sender: FDA-Public Use
  Company Number: AU-GLAXOSMITHKLINE-AU2024APC006810

PATIENT

DRUGS (7)
  1. MEPOLIZUMAB [Suspect]
     Active Substance: MEPOLIZUMAB
     Indication: Hypereosinophilic syndrome
     Dosage: 300 MG, MO
     Dates: start: 202201
  2. ALBENDAZOLE [Suspect]
     Active Substance: ALBENDAZOLE
     Indication: Hypereosinophilic syndrome
     Dosage: 400 MG, BID
  3. DEXAMETHASONE [Suspect]
     Active Substance: DEXAMETHASONE
     Indication: Hypereosinophilic syndrome
     Dosage: 4 MG, BID
  4. IVERMECTIN [Suspect]
     Active Substance: IVERMECTIN
     Indication: Hypereosinophilic syndrome
     Dosage: 200 MG, BID
     Route: 048
  5. MYCOPHENOLATE MOFETIL [Suspect]
     Active Substance: MYCOPHENOLATE MOFETIL
     Indication: Hypereosinophilic syndrome
     Dosage: 1 G, BID
  6. PREDNISOLONE [Suspect]
     Active Substance: PREDNISOLONE
     Indication: Eosinophilic pneumonia
     Dosage: 25 MG, QD
  7. PREDNISOLONE [Suspect]
     Active Substance: PREDNISOLONE
     Dosage: 50 MG, QD

REACTIONS (5)
  - Depression [Unknown]
  - Drug ineffective [Unknown]
  - Memory impairment [Unknown]
  - Neuropsychological symptoms [Unknown]
  - Off label use [Unknown]
